FAERS Safety Report 24155572 (Version 1)
Quarter: 2024Q3

REPORT INFORMATION
  Report Type: Spontaneous
  Country: FR (occurrence: FR)
  Receive Date: 20240731
  Receipt Date: 20240731
  Transmission Date: 20241017
  Serious: Yes (Other)
  Sender: AUROBINDO
  Company Number: FR-ELI_LILLY_AND_COMPANY-FR202407008895

PATIENT
  Age: 55 Year
  Sex: Male

DRUGS (2)
  1. PEMETREXED [Suspect]
     Active Substance: PEMETREXED
     Indication: Product used for unknown indication
     Dosage: UNK
     Route: 065
     Dates: start: 202312
  2. CARBOPLATIN [Concomitant]
     Active Substance: CARBOPLATIN
     Indication: Product used for unknown indication
     Dosage: UNK
     Route: 065
     Dates: start: 202312

REACTIONS (1)
  - Malignant neoplasm progression [Unknown]

NARRATIVE: CASE EVENT DATE: 20240101
